FAERS Safety Report 8509638-3 (Version None)
Quarter: 2012Q3

REPORT INFORMATION
  Report Type: 
  Country: None (occurrence: None)
  Receive Date: 20120713
  Receipt Date: 20120628
  Transmission Date: 20120928
  Serious: Yes (Other)
  Sender: FDA-Public Use
  Company Number: CHPA2012US014708

PATIENT
  Sex: Female

DRUGS (4)
  1. EXCEDRIN EXTRA STRENGTH TABLETS [Suspect]
     Indication: ADNEXA UTERI PAIN
     Dosage: 3 DF IN MORNING, 1 DF AT NIGHT
     Route: 048
  2. EXCEDRIN EXTRA STRENGTH TABLETS [Suspect]
     Dosage: 2 DF, TID
     Route: 048
  3. ASPIRIN [Concomitant]
     Dosage: 3 DF, BID
  4. THYROID TAB [Concomitant]
     Dosage: UNK
     Dates: start: 19840101

REACTIONS (6)
  - MYCOTIC ALLERGY [None]
  - UNDERDOSE [None]
  - SCOLIOSIS [None]
  - OFF LABEL USE [None]
  - INCORRECT DOSE ADMINISTERED [None]
  - OVARIAN DISORDER [None]
